FAERS Safety Report 13320371 (Version 1)
Quarter: 2017Q1

REPORT INFORMATION
  Report Type: Spontaneous
  Country: CA (occurrence: CA)
  Receive Date: 20170309
  Receipt Date: 20170309
  Transmission Date: 20170428
  Serious: Yes (Hospitalization)
  Sender: FDA-Public Use
  Company Number: CA-TEVA-747194ACC

PATIENT
  Age: 77 Year
  Sex: Female
  Weight: 66.74 kg

DRUGS (4)
  1. ELIDEL [Concomitant]
     Active Substance: PIMECROLIMUS
  2. PROMETRIUM [Concomitant]
     Active Substance: PROGESTERONE
  3. TRAZODONE [Suspect]
     Active Substance: TRAZODONE HYDROCHLORIDE
     Indication: PERIODIC LIMB MOVEMENT DISORDER
     Dosage: 300 MILLIGRAM DAILY;
     Route: 048
  4. ESTROGEL [Concomitant]
     Active Substance: ESTRADIOL

REACTIONS (3)
  - Loss of consciousness [Recovered/Resolved]
  - Facial bones fracture [Recovered/Resolved]
  - Concussion [Recovered/Resolved]
